FAERS Safety Report 23036368 (Version 3)
Quarter: 2024Q1

REPORT INFORMATION
  Report Type: Report from Study
  Country: US (occurrence: US)
  Receive Date: 20231006
  Receipt Date: 20240109
  Transmission Date: 20240410
  Serious: No
  Sender: FDA-Public Use
  Company Number: US-002147023-NVSC2023US212043

PATIENT
  Sex: Female

DRUGS (1)
  1. ENTRESTO [Suspect]
     Active Substance: SACUBITRIL\VALSARTAN
     Indication: Product used for unknown indication
     Dosage: UNK
     Route: 065

REACTIONS (8)
  - Nasal congestion [Recovering/Resolving]
  - Dyspnoea [Recovering/Resolving]
  - Product supply issue [Unknown]
  - Asthenia [Unknown]
  - Weight decreased [Unknown]
  - Influenza [Unknown]
  - Fatigue [Unknown]
  - Product dose omission issue [Unknown]
